FAERS Safety Report 10196389 (Version 1)
Quarter: 2014Q2

REPORT INFORMATION
  Report Type: Spontaneous
  Country: JP (occurrence: JP)
  Receive Date: 20140527
  Receipt Date: 20140527
  Transmission Date: 20141212
  Serious: Yes (Hospitalization)
  Sender: FDA-Public Use
  Company Number: JP-NOVOPROD-410695

PATIENT
  Age: 91 Year
  Sex: Male

DRUGS (8)
  1. SUREPOST [Suspect]
     Indication: PRODUCT USED FOR UNKNOWN INDICATION
     Dosage: 0.5 MG, TID
     Route: 048
     Dates: start: 20140121, end: 20140416
  2. PLETAAL [Concomitant]
     Dosage: UNK
     Route: 048
  3. BAYASPIRIN [Concomitant]
     Dosage: UNK
     Route: 048
  4. BLOPRESS [Concomitant]
     Dosage: UNK
     Route: 048
  5. TRAZENTA [Concomitant]
     Dosage: UNK
     Route: 048
  6. DIART [Concomitant]
     Dosage: UNK
     Route: 048
  7. ARTIST [Concomitant]
     Dosage: UNK
     Route: 048
  8. TEPRENONE [Concomitant]
     Dosage: UNK
     Route: 048

REACTIONS (1)
  - Liver disorder [Recovered/Resolved]
